FAERS Safety Report 18284964 (Version 2)
Quarter: 2020Q3

REPORT INFORMATION
  Report Type: Spontaneous
  Country: US (occurrence: US)
  Receive Date: 20200918
  Receipt Date: 20200924
  Transmission Date: 20201103
  Serious: Yes (Other)
  Sender: FDA-Public Use
  Company Number: US-PFIZER INC-2020352209

PATIENT
  Age: 61 Year
  Sex: Female
  Weight: 74.84 kg

DRUGS (2)
  1. OXCARBAZEPINE. [Concomitant]
     Active Substance: OXCARBAZEPINE
     Dosage: 450 MG, DAILY (ONE 150MG, TABLET BY MOUTH, IN THE MORNING AND 2 TABLETS AT NIGHT)
     Route: 048
  2. MORPHINE SULFATE. [Suspect]
     Active Substance: MORPHINE SULFATE
     Dosage: UNK

REACTIONS (1)
  - Drug dependence [Unknown]
